FAERS Safety Report 4947335-1 (Version None)
Quarter: 2006Q1

REPORT INFORMATION
  Report Type: 
  Country: None (occurrence: None)
  Receive Date: 20060317
  Receipt Date: 20060307
  Transmission Date: 20060701
  Serious: Yes (Hospitalization)
  Sender: FDA-Public Use
  Company Number: US-ABBOTT-06P-163-0327095-00

PATIENT
  Sex: Female
  Weight: 102 kg

DRUGS (5)
  1. SYNTHROID [Suspect]
     Indication: THYROID GLAND CANCER
     Route: 048
     Dates: start: 19880101
  2. SYNTHROID [Suspect]
     Route: 048
  3. DIOVAN [Concomitant]
     Indication: HYPERTENSION
     Route: 048
     Dates: start: 20000101, end: 20060103
  4. ATENOLOL [Concomitant]
     Indication: HYPERTENSION
     Route: 048
     Dates: start: 20040101, end: 20060103
  5. HYDROCHLOROTHIAZIDE [Concomitant]
     Indication: HYPERTENSION
     Route: 048
     Dates: start: 20040101

REACTIONS (8)
  - HYPERTENSION [None]
  - PRURITUS GENERALISED [None]
  - RASH GENERALISED [None]
  - SWELLING FACE [None]
  - SWOLLEN TONGUE [None]
  - TONGUE DISCOLOURATION [None]
  - TONGUE ULCERATION [None]
  - URTICARIA [None]
